FAERS Safety Report 15207736 (Version 1)
Quarter: 2018Q3

REPORT INFORMATION
  Report Type: Spontaneous
  Country: US (occurrence: US)
  Receive Date: 20180727
  Receipt Date: 20180727
  Transmission Date: 20181010
  Serious: No
  Sender: FDA-Public Use
  Company Number: US-ALLERGAN-1746866US

PATIENT
  Sex: Male

DRUGS (4)
  1. ANDRODERM [Suspect]
     Active Substance: TESTOSTERONE
     Indication: ANDROGEN REPLACEMENT THERAPY
     Dosage: UNK
     Route: 062
     Dates: end: 20170923
  2. CRESTOR [Concomitant]
     Active Substance: ROSUVASTATIN CALCIUM
     Indication: BLOOD CHOLESTEROL INCREASED
  3. VITAMIN D [Concomitant]
     Active Substance: CHOLECALCIFEROL
     Indication: SUPPLEMENTATION THERAPY
  4. TESTOSTERONE. [Concomitant]
     Active Substance: TESTOSTERONE
     Indication: PRODUCT USED FOR UNKNOWN INDICATION
     Dosage: 200 MG, Q MONTH
     Route: 065
     Dates: start: 2016

REACTIONS (9)
  - Wrong technique in product usage process [Unknown]
  - Drug dose omission [Unknown]
  - Liquid product physical issue [Unknown]
  - Blood iron increased [Unknown]
  - Product adhesion issue [Unknown]
  - Erythema [Unknown]
  - Haematocrit increased [Unknown]
  - Hypothyroidism [Unknown]
  - Inappropriate schedule of drug administration [Unknown]
